FAERS Safety Report 8259639-8 (Version None)
Quarter: 2012Q2

REPORT INFORMATION
  Report Type: 
  Country: None (occurrence: None)
  Receive Date: 20120404
  Receipt Date: 20120330
  Transmission Date: 20120825
  Serious: Yes (Other)
  Sender: FDA-Public Use
  Company Number: PHHY2012MX027910

PATIENT
  Sex: Male

DRUGS (5)
  1. RISPERIDONE [Concomitant]
     Indication: CONVULSION
     Dosage: 1 MG, PER DAY
     Dates: start: 20090101
  2. LAMOTRGINE [Concomitant]
     Indication: CONVULSION
     Dosage: 100 MG AT NIGHTS AND 75 MG IN THE MORNINGS UNK UKN, UNK
     Route: 048
     Dates: start: 20090101
  3. DEPAKENE [Concomitant]
     Indication: CONVULSION
     Dosage: 3.5 ML, TID
     Dates: start: 20090101
  4. TRILEPTAL [Suspect]
     Indication: EPILEPSY
     Dosage: UNK UKN, UNK
     Route: 048
  5. RITALIN [Concomitant]
     Indication: MENTAL DISORDER
     Dosage: 1/2 TABLET
     Route: 048
     Dates: start: 20111001

REACTIONS (5)
  - BLOOD SODIUM DECREASED [None]
  - CONVULSION [None]
  - CARDIAC DISORDER [None]
  - SOMNOLENCE [None]
  - BLOOD POTASSIUM DECREASED [None]
